FAERS Safety Report 23871725 (Version 3)
Quarter: 2024Q2

REPORT INFORMATION
  Report Type: Spontaneous
  Country: US (occurrence: US)
  Receive Date: 20240520
  Receipt Date: 20240624
  Transmission Date: 20240715
  Serious: Yes (Hospitalization, Other)
  Sender: FDA-Public Use
  Company Number: US-SA-SAC20240516000457

PATIENT
  Age: 57 Year
  Sex: Female

DRUGS (24)
  1. DUPIXENT [Suspect]
     Active Substance: DUPILUMAB
     Indication: Asthma
     Dosage: 600 MG, 1X
     Route: 058
     Dates: start: 20240514, end: 20240514
  2. ALBUTEROL SULFATE [Concomitant]
     Active Substance: ALBUTEROL SULFATE
     Dosage: AS NEEDED
  3. ACETAMINOPHEN [Concomitant]
     Active Substance: ACETAMINOPHEN
  4. BUPROPION HYDROCHLORIDE [Concomitant]
     Active Substance: BUPROPION HYDROCHLORIDE
  5. DILTIAZEM HYDROCHLORIDE [Concomitant]
     Active Substance: DILTIAZEM HYDROCHLORIDE
  6. ELIQUIS [Concomitant]
     Active Substance: APIXABAN
  7. ENTRESTO [Concomitant]
     Active Substance: SACUBITRIL\VALSARTAN
  8. FENOFIBRATE [Concomitant]
     Active Substance: FENOFIBRATE
  9. FLUTICASONE [Concomitant]
     Active Substance: FLUTICASONE
  10. LINZESS [Concomitant]
     Active Substance: LINACLOTIDE
  11. METOPROLOL [Concomitant]
     Active Substance: METOPROLOL
  12. MONTELUKAST [Concomitant]
     Active Substance: MONTELUKAST SODIUM
  13. MOUNJARO [Concomitant]
     Active Substance: TIRZEPATIDE
  14. OMEPRAZOLE [Concomitant]
     Active Substance: DONEPEZIL HYDROCHLORIDE\OMEPRAZOLE\OMEPRAZOLE MAGNESIUM
  15. PREDNISONE [Concomitant]
     Active Substance: PREDNISONE
  16. TRELEGY ELLIPTA [Concomitant]
     Active Substance: FLUTICASONE FUROATE\UMECLIDINIUM BROMIDE\VILANTEROL TRIFENATATE
  17. UBRELVY [Concomitant]
     Active Substance: UBROGEPANT
  18. LEVOTHYROXINE [Concomitant]
     Active Substance: LEVOTHYROXINE\LEVOTHYROXINE SODIUM
  19. METHYLPREDNISOLONE [Concomitant]
     Active Substance: METHYLPREDNISOLONE
  20. OMEPRAZOLE [Concomitant]
     Active Substance: DONEPEZIL HYDROCHLORIDE\OMEPRAZOLE\OMEPRAZOLE MAGNESIUM
  21. AZELASTINE HYDROCHLORIDE [Concomitant]
     Active Substance: AZELASTINE HYDROCHLORIDE
  22. TRIAMCINOLONE [Concomitant]
     Active Substance: TRIAMCINOLONE
  23. METOPROLOL TARTRATE [Concomitant]
     Active Substance: METOPROLOL TARTRATE
  24. METRONIDAZOLE [Concomitant]
     Active Substance: METRONIDAZOLE

REACTIONS (3)
  - Pneumonia [Unknown]
  - Throat irritation [Not Recovered/Not Resolved]
  - Injection site pain [Not Recovered/Not Resolved]

NARRATIVE: CASE EVENT DATE: 20240101
